FAERS Safety Report 18507966 (Version 6)
Quarter: 2024Q1

REPORT INFORMATION
  Report Type: Spontaneous
  Country: US (occurrence: US)
  Receive Date: 20201116
  Receipt Date: 20240108
  Transmission Date: 20240409
  Serious: Yes (Other)
  Sender: FDA-Public Use
  Company Number: US-PFIZER INC-2020064185

PATIENT
  Age: 69 Year
  Sex: Male

DRUGS (2)
  1. BOSULIF [Suspect]
     Active Substance: BOSUTINIB MONOHYDRATE
     Indication: Chronic myeloid leukaemia recurrent
     Dosage: 400 MG, DAILY (1 TABLET ORALLY EVERY DAY)
     Route: 048
  2. BOSULIF [Suspect]
     Active Substance: BOSUTINIB MONOHYDRATE
     Dosage: 400 MG, 1X/DAY (4 TAB OF 100 MG PO (PER ORAL) QD (ONCE DAILY)
     Route: 048

REACTIONS (1)
  - Thrombosis [Unknown]
